FAERS Safety Report 13735538 (Version 1)
Quarter: 2017Q3

REPORT INFORMATION
  Report Type: Spontaneous
  Country: US (occurrence: US)
  Receive Date: 20170709
  Receipt Date: 20170709
  Transmission Date: 20171127
  Serious: Yes (Other)
  Sender: FDA-Public Use
  Company Number: None

PATIENT
  Age: 32 Year
  Sex: Male
  Weight: 81 kg

DRUGS (1)
  1. SUBUTEX [Suspect]
     Active Substance: BUPRENORPHINE HYDROCHLORIDE
     Indication: SUBSTANCE ABUSE
     Dosage: ?          OTHER STRENGTH:MG;QUANTITY:15 CAPSULE(S);?
     Route: 060
     Dates: start: 20170612, end: 20170709

REACTIONS (12)
  - Dyspnoea [None]
  - Irritability [None]
  - Confusional state [None]
  - Headache [None]
  - Product substitution issue [None]
  - Sedation [None]
  - Loss of personal independence in daily activities [None]
  - Frustration tolerance decreased [None]
  - Anger [None]
  - Impaired driving ability [None]
  - Depression [None]
  - Lethargy [None]

NARRATIVE: CASE EVENT DATE: 20170612
